FAERS Safety Report 26207596 (Version 1)
Quarter: 2025Q4

REPORT INFORMATION
  Report Type: Spontaneous
  Country: US (occurrence: US)
  Receive Date: 20251229
  Receipt Date: 20251229
  Transmission Date: 20260118
  Serious: Yes (Other)
  Sender: MYLAN
  Company Number: US-MYLANLABS-2025M1109099

PATIENT
  Age: 72 Year
  Sex: Male

DRUGS (8)
  1. GABAPENTIN [Suspect]
     Active Substance: GABAPENTIN
     Indication: Meralgia paraesthetica
     Dosage: 300 MILLIGRAM, TID
  2. GABAPENTIN [Suspect]
     Active Substance: GABAPENTIN
     Indication: Pain in extremity
  3. LIDOCAINE [Suspect]
     Active Substance: LIDOCAINE
     Indication: Meralgia paraesthetica
     Dosage: UNK UNK, QD
     Route: 048
  4. LIDOCAINE [Suspect]
     Active Substance: LIDOCAINE
     Indication: Pain in extremity
  5. OXYCODONE [Suspect]
     Active Substance: OXYCODONE
     Indication: Meralgia paraesthetica
     Dosage: 5 MILLIGRAM, TID
  6. OXYCODONE [Suspect]
     Active Substance: OXYCODONE
     Indication: Pain in extremity
  7. CAPSAICIN [Concomitant]
     Active Substance: CAPSAICIN
     Indication: Meralgia paraesthetica
     Dosage: UNK, RECEIVED 3-4 TIMES DAILY
  8. CAPSAICIN [Concomitant]
     Active Substance: CAPSAICIN
     Indication: Pain in extremity

REACTIONS (1)
  - Drug ineffective [Unknown]
